FAERS Safety Report 17812735 (Version 1)
Quarter: 2020Q2

REPORT INFORMATION
  Report Type: Spontaneous
  Country: US (occurrence: US)
  Receive Date: 20200521
  Receipt Date: 20200521
  Transmission Date: 20200714
  Serious: Yes (Hospitalization)
  Sender: FDA-Public Use
  Company Number: None

PATIENT
  Age: 64 Year
  Sex: Female

DRUGS (8)
  1. ENBREL [Suspect]
     Active Substance: ETANERCEPT
     Indication: RHEUMATOID ARTHRITIS
     Route: 058
     Dates: start: 20170412
  2. HYDROCO/APAP TAB 10-325 MG [Concomitant]
  3. METRONIDAZOLE TAB 500 MG [Concomitant]
  4. PANTOPRAZOLE TAB 40 MG [Concomitant]
  5. ESCITALOPRAM TAB 10 MG [Concomitant]
  6. FAMOTIDINE TAB 20 MG [Concomitant]
  7. LEVOFLOXACIN TAB 750 MG [Concomitant]
  8. FOLIC ACID TAB 1000 MG [Concomitant]

REACTIONS (1)
  - Surgery [None]
